FAERS Safety Report 8019484-5 (Version None)
Quarter: 2012Q1

REPORT INFORMATION
  Report Type: 
  Country: None (occurrence: None)
  Receive Date: 20120103
  Receipt Date: 20111229
  Transmission Date: 20120608
  Serious: Yes (Death)
  Sender: FDA-Public Use
  Company Number: PHEH2011US010203

PATIENT
  Sex: Male
  Weight: 67 kg

DRUGS (1)
  1. EXJADE [Suspect]
     Dosage: 2000 MG, QD
     Route: 048

REACTIONS (4)
  - MYELODYSPLASTIC SYNDROME TRANSFORMATION [None]
  - ACUTE MYELOID LEUKAEMIA [None]
  - CONFUSIONAL STATE [None]
  - ASTHENIA [None]
